FAERS Safety Report 8400763-4 (Version None)
Quarter: 2012Q2

REPORT INFORMATION
  Report Type: 
  Country: None (occurrence: None)
  Receive Date: 20120531
  Receipt Date: 20120529
  Transmission Date: 20120825
  Serious: Yes (Hospitalization)
  Sender: FDA-Public Use
  Company Number: IT-MERCK-1205USA01160

PATIENT
  Age: 73 Year
  Sex: Male

DRUGS (3)
  1. JANUVIA [Suspect]
     Indication: DIABETES MELLITUS
     Route: 048
     Dates: start: 20120316, end: 20120409
  2. ALLOPURINOL [Concomitant]
     Route: 048
  3. REPAGLINIDE [Concomitant]
     Route: 048

REACTIONS (3)
  - SWELLING FACE [None]
  - HYPERGLYCAEMIA [None]
  - GENERALISED ERYTHEMA [None]
